FAERS Safety Report 20474058 (Version 1)
Quarter: 2022Q1

REPORT INFORMATION
  Report Type: Spontaneous
  Country: US (occurrence: None)
  Receive Date: 20220214
  Receipt Date: 20220214
  Transmission Date: 20220423
  Serious: Yes (Death)
  Sender: FDA-Public Use
  Company Number: None

PATIENT
  Age: 66 Year
  Sex: Male

DRUGS (1)
  1. CAPECITABINE [Suspect]
     Active Substance: CAPECITABINE
     Indication: Cholangiocarcinoma
     Dosage: 2 TABLETS TWICE A DAY ORAL?
     Route: 048
     Dates: start: 20211229, end: 20220130

REACTIONS (1)
  - Cholangiocarcinoma [None]

NARRATIVE: CASE EVENT DATE: 20211229
